FAERS Safety Report 20067215 (Version 1)
Quarter: 2021Q4

REPORT INFORMATION
  Report Type: Spontaneous
  Country: US (occurrence: US)
  Receive Date: 20211115
  Receipt Date: 20211115
  Transmission Date: 20220303
  Serious: Yes (Hospitalization)
  Sender: FDA-Public Use
  Company Number: US-DECIPHERA PHARMACEUTICALS LLC-2021US001013

PATIENT
  Sex: Female

DRUGS (1)
  1. QINLOCK [Suspect]
     Active Substance: RIPRETINIB
     Indication: Head and neck cancer
     Dosage: 150 MILLIGRAM, QD
     Route: 048
     Dates: start: 20210101

REACTIONS (1)
  - Hospitalisation [Unknown]

NARRATIVE: CASE EVENT DATE: 20210101
